FAERS Safety Report 12865971 (Version 1)
Quarter: 2016Q4

REPORT INFORMATION
  Report Type: Spontaneous
  Country: US (occurrence: US)
  Receive Date: 20161019
  Receipt Date: 20161019
  Transmission Date: 20170207
  Serious: Yes (Hospitalization)
  Sender: FDA-Public Use
  Company Number: None

PATIENT
  Age: 51 Year
  Sex: Male
  Weight: 143.6 kg

DRUGS (20)
  1. DACLATASVIR 60MG BRISTOL MYERS SQUIBB [Suspect]
     Active Substance: DACLATASVIR
     Indication: HEPATITIS C
     Route: 048
     Dates: start: 20160630
  2. ZAROXOLYN [Concomitant]
     Active Substance: METOLAZONE
  3. DITROPAN [Concomitant]
     Active Substance: OXYBUTYNIN CHLORIDE
  4. PROPRANOLOL [Concomitant]
     Active Substance: PROPRANOLOL\PROPRANOLOL HYDROCHLORIDE
  5. CLAFORAN [Concomitant]
     Active Substance: CEFOTAXIME SODIUM
  6. CIPRO [Concomitant]
     Active Substance: CIPROFLOXACIN HYDROCHLORIDE
  7. BUMEX [Concomitant]
     Active Substance: BUMETANIDE
  8. ROXICODONE [Concomitant]
     Active Substance: OXYCODONE HYDROCHLORIDE
  9. KRISTALOSE [Concomitant]
     Active Substance: LACTULOSE
  10. CYMBALTA [Concomitant]
     Active Substance: DULOXETINE HYDROCHLORIDE
  11. POTASSIUM CHLORIDE. [Concomitant]
     Active Substance: POTASSIUM CHLORIDE
  12. XIFAXAN [Concomitant]
     Active Substance: RIFAXIMIN
  13. FENTANYL. [Concomitant]
     Active Substance: FENTANYL
  14. SOFOSBUVIR 400MG GILEAD [Suspect]
     Active Substance: SOFOSBUVIR
     Indication: HEPATITIS C
     Route: 048
     Dates: start: 20160630
  15. SYMBICORT [Concomitant]
     Active Substance: BUDESONIDE\FORMOTEROL FUMARATE DIHYDRATE
  16. LACTULOSE. [Concomitant]
     Active Substance: LACTULOSE
  17. FUROSEMIDE. [Concomitant]
     Active Substance: FUROSEMIDE
  18. ALDACTONE [Concomitant]
     Active Substance: SPIRONOLACTONE
  19. ALBUTEROL. [Concomitant]
     Active Substance: ALBUTEROL
  20. ALBUTEROL. [Concomitant]
     Active Substance: ALBUTEROL

REACTIONS (4)
  - Acute kidney injury [None]
  - Hepatorenal syndrome [None]
  - Peripheral swelling [None]
  - Dysuria [None]

NARRATIVE: CASE EVENT DATE: 20160825
